FAERS Safety Report 6016674-8 (Version None)
Quarter: 2008Q4

REPORT INFORMATION
  Report Type: 
  Country: None (occurrence: None)
  Receive Date: 20081222
  Receipt Date: 20081212
  Transmission Date: 20090506
  Serious: Yes (Other)
  Sender: FDA-Public Use
  Company Number: CA-ABBOTT-08P-028-0493334-00

PATIENT
  Sex: Male
  Weight: 90.8 kg

DRUGS (8)
  1. LUPRON DEPOT [Suspect]
     Indication: PROSTATE CANCER
     Route: 050
     Dates: start: 20070101
  2. DILAUDID [Concomitant]
     Indication: DRUG USE FOR UNKNOWN INDICATION
  3. ZOPLICONE [Concomitant]
     Indication: DRUG USE FOR UNKNOWN INDICATION
  4. MELOXICAM [Concomitant]
     Indication: DRUG USE FOR UNKNOWN INDICATION
  5. LIPITOR [Concomitant]
     Indication: DRUG USE FOR UNKNOWN INDICATION
  6. NOVOHYDRAZIDE [Concomitant]
     Indication: DRUG USE FOR UNKNOWN INDICATION
  7. ASAPHEN EC [Concomitant]
     Indication: DRUG USE FOR UNKNOWN INDICATION
  8. ALTACE [Concomitant]
     Indication: DRUG USE FOR UNKNOWN INDICATION

REACTIONS (1)
  - CEREBROVASCULAR ACCIDENT [None]
